FAERS Safety Report 25147744 (Version 1)
Quarter: 2025Q2

REPORT INFORMATION
  Report Type: Report from Study
  Country: US (occurrence: US)
  Receive Date: 20250402
  Receipt Date: 20250402
  Transmission Date: 20250716
  Serious: Yes (Death, Other)
  Sender: INSMED
  Company Number: US-INSMED-2024-00039-USAA

PATIENT
  Age: 55 Year
  Sex: Female

DRUGS (2)
  1. ARIKAYCE [Suspect]
     Active Substance: AMIKACIN
     Indication: Mycobacterium avium complex infection
     Dosage: 590 MILLIGRAM, QD
     Route: 055
     Dates: start: 20231228, end: 202409
  2. ARIKAYCE [Suspect]
     Active Substance: AMIKACIN
     Dosage: 590 MILLIGRAM, QD
     Route: 055
     Dates: start: 2024

REACTIONS (14)
  - Death [Fatal]
  - Chemotherapy [Unknown]
  - Hernia [Unknown]
  - Intestinal polyp [Unknown]
  - Fatigue [Not Recovered/Not Resolved]
  - Unevaluable event [Recovering/Resolving]
  - Cough [Unknown]
  - Dyspnoea [Unknown]
  - Patient dissatisfaction with treatment [Unknown]
  - Product dose omission issue [Unknown]
  - Intentional dose omission [Unknown]
  - Wrong technique in device usage process [Unknown]
  - Patient dissatisfaction with device [Unknown]
  - Drug ineffective [Unknown]

NARRATIVE: CASE EVENT DATE: 20240829
